FAERS Safety Report 7087086-3 (Version None)
Quarter: 2010Q4

REPORT INFORMATION
  Report Type: 
  Country: None (occurrence: None)
  Receive Date: 20101106
  Receipt Date: 20101025
  Transmission Date: 20110411
  Serious: No
  Sender: FDA-Public Use
  Company Number: US-WYE-H18351710

PATIENT
  Age: 53 Year
  Sex: Female
  Weight: 86.26 kg

DRUGS (1)
  1. ADVIL COLD AND SINUS [Suspect]
     Indication: NASOPHARYNGITIS
     Dosage: 1 CAPLET EVERY 5 HOURS
     Route: 048
     Dates: start: 20101021, end: 20101024

REACTIONS (3)
  - CONDITION AGGRAVATED [None]
  - COUGH [None]
  - DRUG INEFFECTIVE [None]
